FAERS Safety Report 9324548 (Version 2)
Quarter: 2014Q2

REPORT INFORMATION
  Report Type: Spontaneous
  Country: US (occurrence: US)
  Receive Date: 20130603
  Receipt Date: 20140402
  Transmission Date: 20141212
  Serious: Yes (Hospitalization, Other)
  Sender: FDA-Public Use
  Company Number: US-B.I. PHARMACEUTICALS,INC./RIDGEFIELD-2013-BI-15302BP

PATIENT
  Sex: Male
  Weight: 104.33 kg

DRUGS (5)
  1. PRADAXA [Suspect]
     Indication: ATRIAL FIBRILLATION
     Dosage: 300 MG
     Route: 048
     Dates: start: 20110531, end: 20120328
  2. VITAMIN C [Concomitant]
     Dosage: 500 MG
     Route: 048
  3. TENORMIN [Concomitant]
     Dosage: 500 MG
     Route: 048
  4. VITAMIN E [Concomitant]
     Dosage: 200 U
     Route: 048
  5. VYTORIN [Concomitant]
     Route: 048

REACTIONS (4)
  - Gastrointestinal haemorrhage [Unknown]
  - Anaemia [Unknown]
  - Plasma cell myeloma [Unknown]
  - Rash [Unknown]
